FAERS Safety Report 25807567 (Version 3)
Quarter: 2025Q4

REPORT INFORMATION
  Report Type: Report from Study
  Country: US (occurrence: US)
  Receive Date: 20250916
  Receipt Date: 20251008
  Transmission Date: 20260118
  Serious: Yes (Other)
  Sender: ABBVIE
  Company Number: US-ABBVIE-6455005

PATIENT
  Age: 75 Year
  Sex: Female
  Weight: 77.11 kg

DRUGS (10)
  1. SKYRIZI [Suspect]
     Active Substance: RISANKIZUMAB-RZAA
     Indication: Crohn^s disease
     Dosage: FORM STRENGTH: 360 MILLIGRAM
     Route: 058
     Dates: start: 2024
  2. IRON [Concomitant]
     Active Substance: IRON
     Indication: Mineral supplementation
     Dates: start: 202506
  3. FLONASE [Concomitant]
     Active Substance: FLUTICASONE PROPIONATE
     Indication: Multiple allergies
  4. PRISTIQ EXTENDED-RELEASE [Concomitant]
     Active Substance: DESVENLAFAXINE SUCCINATE
     Indication: Depression
  5. AMLODIPINE [Concomitant]
     Active Substance: AMLODIPINE BESYLATE
     Indication: Blood pressure management
  6. BUPROPION [Concomitant]
     Active Substance: BUPROPION
     Indication: Depression
  7. NEXIUM [Concomitant]
     Active Substance: ESOMEPRAZOLE MAGNESIUM
     Indication: Gastrooesophageal reflux disease
  8. PEPCID [Concomitant]
     Active Substance: FAMOTIDINE
     Indication: Dyspepsia
  9. AVAPRO [Concomitant]
     Active Substance: IRBESARTAN
     Indication: Blood pressure management
  10. LIPITOR [Concomitant]
     Active Substance: ATORVASTATIN CALCIUM
     Indication: Blood cholesterol abnormal

REACTIONS (8)
  - Breast cancer female [Not Recovered/Not Resolved]
  - Thyroid mass [Recovering/Resolving]
  - Gastrointestinal ulcer [Not Recovered/Not Resolved]
  - Colon cancer [Not Recovered/Not Resolved]
  - Iron deficiency anaemia [Recovering/Resolving]
  - Pneumonia [Unknown]
  - Multiple allergies [Unknown]
  - Cough [Recovered/Resolved]

NARRATIVE: CASE EVENT DATE: 20250501
